FAERS Safety Report 6170240-2 (Version None)
Quarter: 2009Q2

REPORT INFORMATION
  Report Type: 
  Country: None (occurrence: None)
  Receive Date: 20090428
  Receipt Date: 20090416
  Transmission Date: 20091009
  Serious: Yes (Other)
  Sender: FDA-Public Use
  Company Number: DE-PFIZER INC-2009199539

PATIENT

DRUGS (4)
  1. SOBELIN [Suspect]
     Indication: IMPLANT SITE REACTION
     Dosage: 300 MG, 3X/DAY
     Dates: start: 20090414, end: 20090416
  2. REACTINE [Concomitant]
  3. PRAVASTATIN [Concomitant]
  4. ALL OTHER THERAPEUTIC PRODUCTS [Concomitant]

REACTIONS (2)
  - ARTHRALGIA [None]
  - PARESIS [None]
